FAERS Safety Report 12531500 (Version 1)
Quarter: 2016Q3

REPORT INFORMATION
  Report Type: Spontaneous
  Country: US (occurrence: US)
  Receive Date: 20160706
  Receipt Date: 20160706
  Transmission Date: 20161109
  Serious: No
  Sender: FDA-Public Use
  Company Number: US-EMD SERONO-8093510

PATIENT
  Sex: Male

DRUGS (1)
  1. SEROSTIM [Suspect]
     Active Substance: SOMATROPIN
     Indication: MALNUTRITION
     Route: 058
     Dates: start: 20081113

REACTIONS (1)
  - Joint effusion [Recovering/Resolving]
